FAERS Safety Report 4593035-X (Version None)
Quarter: 2005Q1

REPORT INFORMATION
  Report Type: 
  Country: None (occurrence: None)
  Receive Date: 20050301
  Receipt Date: 20050216
  Transmission Date: 20050727
  Serious: Yes (Other)
  Sender: FDA-Public Use
  Company Number: DE-JNJFOC-20050204164

PATIENT
  Sex: Male

DRUGS (1)
  1. INFLIXIMAB [Suspect]
     Indication: JUVENILE ARTHRITIS
     Dosage: 3-4 MG/KG AT 0,2,6,14 AND THEN EVERY 8 WEEKS
     Route: 042

REACTIONS (1)
  - TUBERCULOSIS [None]
